FAERS Safety Report 12897878 (Version 1)
Quarter: 2016Q4

REPORT INFORMATION
  Report Type: Spontaneous
  Country: US (occurrence: US)
  Receive Date: 20161028
  Receipt Date: 20161028
  Transmission Date: 20170207
  Serious: Yes (Hospitalization)
  Sender: FDA-Public Use
  Company Number: None

PATIENT
  Age: 87 Year
  Sex: Female

DRUGS (1)
  1. ENBREL [Suspect]
     Active Substance: ETANERCEPT
     Indication: RHEUMATOID ARTHRITIS
     Dosage: 50MG/ML EVERY 7 DAYS SUBCUTANEOUSLY
     Route: 058
     Dates: start: 20160805, end: 20161020

REACTIONS (1)
  - Hospice care [None]

NARRATIVE: CASE EVENT DATE: 20161022
